FAERS Safety Report 17807474 (Version 1)
Quarter: 2020Q2

REPORT INFORMATION
  Report Type: Spontaneous
  Country: US (occurrence: US)
  Receive Date: 20200519
  Receipt Date: 20200519
  Transmission Date: 20200714
  Serious: Yes (Hospitalization)
  Sender: FDA-Public Use
  Company Number: None

PATIENT
  Age: 19 Year
  Sex: Male

DRUGS (3)
  1. MESALAMINE. [Concomitant]
     Active Substance: MESALAMINE
  2. XELJANZ [Suspect]
     Active Substance: TOFACITINIB CITRATE
     Route: 048
     Dates: start: 20200107, end: 20200518
  3. VIT D [Concomitant]
     Active Substance: VITAMIN D NOS

REACTIONS (2)
  - Surgery [None]
  - Colitis ulcerative [None]

NARRATIVE: CASE EVENT DATE: 20200507
